FAERS Safety Report 10083223 (Version 2)
Quarter: 2014Q3

REPORT INFORMATION
  Report Type: Spontaneous
  Country: FR (occurrence: FR)
  Receive Date: 20140417
  Receipt Date: 20140718
  Transmission Date: 20150326
  Serious: Yes (Other)
  Sender: FDA-Public Use
  Company Number: FR-BRISTOL-MYERS SQUIBB COMPANY-20627519

PATIENT
  Age: 33 Year
  Sex: Female
  Weight: 92 kg

DRUGS (4)
  1. LASILIX [Concomitant]
     Active Substance: FUROSEMIDE
     Indication: PERIPARTUM CARDIOMYOPATHY
     Dates: start: 201308
  2. PARACETAMOL [Concomitant]
     Active Substance: ACETAMINOPHEN
  3. ORENCIA [Suspect]
     Active Substance: ABATACEPT
     Indication: RHEUMATOID ARTHRITIS
     Route: 042
     Dates: start: 20140310, end: 20140325
  4. TEMERIT [Concomitant]
     Active Substance: NEBIVOLOL
     Indication: PERIPARTUM CARDIOMYOPATHY

REACTIONS (2)
  - Viral upper respiratory tract infection [Unknown]
  - Hepatitis [Recovered/Resolved]

NARRATIVE: CASE EVENT DATE: 20140313
